FAERS Safety Report 5474191-8 (Version None)
Quarter: 2007Q3

REPORT INFORMATION
  Report Type: 
  Country: None (occurrence: None)
  Receive Date: 20070928
  Receipt Date: 20070924
  Transmission Date: 20080115
  Serious: Yes (Other)
  Sender: FDA-Public Use
  Company Number: CHPA2007US09968

PATIENT
  Age: 57 Year
  Sex: Male

DRUGS (4)
  1. BENEFIBER W/WHEAT DEXTRIN (NCH)(WHEAT DEXTRIN) POWDER [Suspect]
     Indication: BOWEL MOVEMENT IRREGULARITY
     Dosage: 1 TSP, QD FOR 2 WEEKS, ORAL
     Route: 048
     Dates: start: 20070901, end: 20070923
  2. ASPIRIN [Concomitant]
  3. GABAPENTIN [Concomitant]
  4. DRUG THERAPY NOS (DRUG THERAPY NOS) [Concomitant]

REACTIONS (1)
  - HAEMATOCHEZIA [None]
